FAERS Safety Report 8514241-5 (Version None)
Quarter: 2012Q3

REPORT INFORMATION
  Report Type: 
  Country: None (occurrence: None)
  Receive Date: 20120717
  Receipt Date: 20120705
  Transmission Date: 20120928
  Serious: Yes (Other)
  Sender: FDA-Public Use
  Company Number: US-RB-042113-12

PATIENT
  Age: 16 Year
  Sex: Male

DRUGS (3)
  1. DELSYM [Suspect]
     Indication: PRODUCT USED FOR UNKNOWN INDICATION
     Dosage: USED PRODUCT NOT MORE THAN 20ML IN 24 HOURS. LAST DOSE OF THE PRODUCT WAS OF 10ML
     Route: 048
     Dates: start: 20120701
  2. ALBUTERAL INHALER [Concomitant]
     Indication: PRODUCT USED FOR UNKNOWN INDICATION
  3. Z-PACK ANTIBIOTIC [Concomitant]
     Indication: PRODUCT USED FOR UNKNOWN INDICATION

REACTIONS (5)
  - HALLUCINATION [None]
  - DELIRIUM [None]
  - FEELING ABNORMAL [None]
  - THINKING ABNORMAL [None]
  - INAPPROPRIATE AFFECT [None]
